FAERS Safety Report 11097639 (Version 1)
Quarter: 2015Q2

REPORT INFORMATION
  Report Type: Spontaneous
  Country: KR (occurrence: KR)
  Receive Date: 20150507
  Receipt Date: 20150507
  Transmission Date: 20150821
  Serious: Yes (Other)
  Sender: FDA-Public Use
  Company Number: KR-009507513-1504KOR024258

PATIENT
  Sex: Male

DRUGS (1)
  1. PROSCAR [Suspect]
     Active Substance: FINASTERIDE
     Dosage: UNKNOWN
     Route: 048
     Dates: start: 2014, end: 20150423

REACTIONS (5)
  - Pyrexia [Unknown]
  - Breast mass [Unknown]
  - Pain in extremity [Unknown]
  - Gynaecomastia [Not Recovered/Not Resolved]
  - Metastasis [Unknown]

NARRATIVE: CASE EVENT DATE: 2015
